FAERS Safety Report 4307412-5 (Version None)
Quarter: 2004Q1

REPORT INFORMATION
  Report Type: 
  Country: None (occurrence: None)
  Receive Date: 20040226
  Receipt Date: 20040218
  Transmission Date: 20041129
  Serious: Yes (Hospitalization)
  Sender: FDA-Public Use
  Company Number: 200410845BCC

PATIENT
  Age: 75 Year
  Sex: Female
  Weight: 61.2356 kg

DRUGS (3)
  1. ALEVE [Suspect]
     Indication: BACK PAIN
     Dosage: SEE IMAGE
     Route: 048
     Dates: start: 20040201, end: 20040207
  2. ALEVE [Suspect]
     Indication: BACK PAIN
     Dosage: SEE IMAGE
     Route: 048
     Dates: start: 20040201, end: 20040207
  3. ALEVE [Suspect]

REACTIONS (2)
  - BLOOD PRESSURE INCREASED [None]
  - CHEST PAIN [None]
